FAERS Safety Report 7793128-X (Version None)
Quarter: 2011Q4

REPORT INFORMATION
  Report Type: 
  Country: None (occurrence: None)
  Receive Date: 20111003
  Receipt Date: 20110922
  Transmission Date: 20120403
  Serious: Yes (Hospitalization)
  Sender: FDA-Public Use
  Company Number: US-JNJFOC-20110910308

PATIENT
  Sex: Male
  Weight: 41.2 kg

DRUGS (7)
  1. FLAGYL [Concomitant]
  2. AZATHIOPRINE [Suspect]
     Indication: INFLAMMATORY BOWEL DISEASE
  3. PREDNISONE [Concomitant]
     Indication: INFLAMMATORY BOWEL DISEASE
  4. CALCIUM CARBONATE [Concomitant]
  5. FERROUS SULFATE TAB [Concomitant]
  6. REMICADE [Suspect]
     Indication: INFLAMMATORY BOWEL DISEASE
     Route: 042
     Dates: start: 20091027
  7. MESALAMINE [Concomitant]
     Indication: INFLAMMATORY BOWEL DISEASE

REACTIONS (2)
  - TREATMENT NONCOMPLIANCE [None]
  - WEIGHT DECREASED [None]
